FAERS Safety Report 7736110-0 (Version None)
Quarter: 2011Q3

REPORT INFORMATION
  Report Type: 
  Country: None (occurrence: None)
  Receive Date: 20110902
  Receipt Date: 20110822
  Transmission Date: 20111222
  Serious: Yes (Hospitalization, Other)
  Sender: FDA-Public Use
  Company Number: GER/GER/11/0020780

PATIENT
  Sex: Male
  Weight: 3.17 kg

DRUGS (2)
  1. FLUOXETINE [Suspect]
     Indication: DEPRESSION
     Dosage: 20 MG, TRANSPLACENTAL
     Route: 064
  2. CYTOTEC [Concomitant]

REACTIONS (5)
  - MATERNAL DRUGS AFFECTING FOETUS [None]
  - HYPERBILIRUBINAEMIA [None]
  - PREMATURE BABY [None]
  - RESPIRATORY DISTRESS [None]
  - LABOUR INDUCTION [None]
